FAERS Safety Report 15575815 (Version 1)
Quarter: 2018Q4

REPORT INFORMATION
  Report Type: Spontaneous
  Country: ZA (occurrence: ZA)
  Receive Date: 20181101
  Receipt Date: 20181101
  Transmission Date: 20190205
  Serious: Yes (Life-Threatening)
  Sender: FDA-Public Use
  Company Number: ZA-MYLANLABS-2018M1081714

PATIENT
  Age: 5 Year
  Sex: Female

DRUGS (1)
  1. EPIPEN JR [Suspect]
     Active Substance: EPINEPHRINE
     Indication: ANAPHYLACTIC REACTION
     Dosage: 0.15 UNK, ONCE
     Route: 030
     Dates: start: 20181023, end: 20181023

REACTIONS (1)
  - Device failure [Recovered/Resolved]

NARRATIVE: CASE EVENT DATE: 20181023
